FAERS Safety Report 8743128 (Version 3)
Quarter: 2013Q1

REPORT INFORMATION
  Report Type: Spontaneous
  Country: US (occurrence: US)
  Receive Date: 20120824
  Receipt Date: 20130114
  Transmission Date: 20140127
  Serious: Yes (Hospitalization)
  Sender: FDA-Public Use
  Company Number: US-GILEAD-2012-0060175

PATIENT
  Age: 41 Year
  Sex: Male

DRUGS (2)
  1. LETAIRIS [Suspect]
     Indication: PRODUCT USED FOR UNKNOWN INDICATION
     Dosage: 5 MG, UNK
     Route: 048
     Dates: start: 20120626
  2. LETAIRIS [Suspect]
     Dosage: 10 UNK, UNK
     Route: 048

REACTIONS (2)
  - Gastrooesophageal reflux disease [Unknown]
  - Gastric disorder [Unknown]
